FAERS Safety Report 9003068 (Version 6)
Quarter: 2014Q2

REPORT INFORMATION
  Report Type: Spontaneous
  Country: US (occurrence: US)
  Receive Date: 20130108
  Receipt Date: 20140417
  Transmission Date: 20141212
  Serious: Yes (Hospitalization, Disabling, Other)
  Sender: FDA-Public Use
  Company Number: US-MERCK-1301USA001474

PATIENT
  Sex: Female

DRUGS (2)
  1. FOSAMAX [Suspect]
     Indication: OSTEOPENIA
     Dosage: 70 MG, UNK
     Route: 048
     Dates: start: 1995, end: 20061107
  2. FOSAMAX [Suspect]
     Indication: OSTEOPOROSIS PROPHYLAXIS
     Dosage: UNK
     Route: 048

REACTIONS (83)
  - Femur fracture [Unknown]
  - Hip arthroplasty [Unknown]
  - Osteonecrosis [Unknown]
  - Femur fracture [Unknown]
  - Internal fixation of fracture [Unknown]
  - Femoral neck fracture [Not Recovered/Not Resolved]
  - Open reduction of fracture [Unknown]
  - Osteoporosis [Not Recovered/Not Resolved]
  - Stress fracture [Not Recovered/Not Resolved]
  - Hip arthroplasty [Unknown]
  - Femur fracture [Not Recovered/Not Resolved]
  - Low turnover osteopathy [Not Recovered/Not Resolved]
  - Road traffic accident [Unknown]
  - Leg amputation [Unknown]
  - Joint manipulation [Unknown]
  - Knee arthroplasty [Unknown]
  - Hip arthroplasty [Unknown]
  - Sinus operation [Unknown]
  - Hip arthroplasty [Unknown]
  - Knee arthroplasty [Unknown]
  - Rib fracture [Unknown]
  - Hip arthroplasty [Unknown]
  - Femur fracture [Unknown]
  - Open reduction of fracture [Unknown]
  - Bone graft [Unknown]
  - Hip arthroplasty [Unknown]
  - Cholecystectomy [Unknown]
  - Rib fracture [Unknown]
  - Hypersensitivity [Unknown]
  - Rib fracture [Unknown]
  - Rib fracture [Unknown]
  - Diabetes mellitus [Unknown]
  - Vitamin D deficiency [Unknown]
  - Tooth extraction [Unknown]
  - Menopause [Unknown]
  - Blood cholesterol increased [Unknown]
  - Depression [Unknown]
  - Bacterial infection [Not Recovered/Not Resolved]
  - Inflammation [Unknown]
  - Skin disorder [Not Recovered/Not Resolved]
  - Foot fracture [Unknown]
  - Nasal congestion [Unknown]
  - Urinary tract infection [Unknown]
  - Osteoarthritis [Unknown]
  - Cough [Unknown]
  - Asthma [Unknown]
  - Foot fracture [Unknown]
  - Dyslipidaemia [Unknown]
  - Large intestine polyp [Unknown]
  - Osteoporosis [Unknown]
  - Haematocrit decreased [Unknown]
  - Intervertebral disc degeneration [Unknown]
  - Cataract operation [Unknown]
  - Hyperglycaemia [Unknown]
  - Hiatus hernia [Unknown]
  - Hypoaesthesia [Unknown]
  - Medical device removal [Unknown]
  - Sinus antrostomy [Unknown]
  - Insomnia [Unknown]
  - Anaemia [Unknown]
  - Hyperlipidaemia [Unknown]
  - Tonsillectomy [Unknown]
  - Adenoidectomy [Unknown]
  - Appendicectomy [Unknown]
  - Haemorrhoids [Unknown]
  - Dental care [Unknown]
  - Osteoarthritis [Unknown]
  - Intervertebral disc degeneration [Unknown]
  - Spinal compression fracture [Unknown]
  - Osteosclerosis [Unknown]
  - Osteoarthritis [Unknown]
  - Pelvic pain [Unknown]
  - Ankle fracture [Unknown]
  - Post procedural haemorrhage [Unknown]
  - Lordosis [Unknown]
  - Hernia repair [Unknown]
  - Muscle spasms [Unknown]
  - Abdominal pain upper [Unknown]
  - Back pain [Unknown]
  - Dizziness [Unknown]
  - Pain in extremity [Unknown]
  - Gastric ulcer [Unknown]
  - Abdominal distension [Unknown]
